FAERS Safety Report 4652590-1 (Version None)
Quarter: 2005Q2

REPORT INFORMATION
  Report Type: 
  Country: None (occurrence: None)
  Receive Date: 20050504
  Receipt Date: 20050425
  Transmission Date: 20051028
  Serious: Yes (Other)
  Sender: FDA-Public Use
  Company Number: IE-JNJFOC-20040909781

PATIENT
  Sex: Male
  Weight: 73.03 kg

DRUGS (9)
  1. RISPERDAL CONSTA [Suspect]
     Route: 030
  2. RISPERDAL CONSTA [Suspect]
     Route: 030
  3. RISPERDAL CONSTA [Suspect]
     Route: 030
  4. RISPERDAL [Concomitant]
     Dosage: NOCTE
     Route: 049
  5. RISPERDAL [Concomitant]
     Dosage: NOCTE
     Route: 049
  6. RISPERDAL [Concomitant]
     Dosage: NOCTE
     Route: 049
  7. MOTILIUM [Concomitant]
  8. ZOTON [Concomitant]
     Dosage: MANE
  9. ELTROXIN [Concomitant]
     Indication: HYPOTHYROIDISM

REACTIONS (2)
  - CHOLELITHIASIS [None]
  - LIVER FUNCTION TEST ABNORMAL [None]
